FAERS Safety Report 13394818 (Version 1)
Quarter: 2017Q2

REPORT INFORMATION
  Report Type: Spontaneous
  Country: JP (occurrence: JP)
  Receive Date: 20170403
  Receipt Date: 20170403
  Transmission Date: 20170830
  Serious: Yes (Other)
  Sender: FDA-Public Use
  Company Number: JP-ACCORD-049755

PATIENT
  Age: 68 Year
  Sex: Male

DRUGS (11)
  1. OXALIPLATIN. [Suspect]
     Active Substance: OXALIPLATIN
     Indication: METASTASES TO LIVER
     Dosage: ON DAY 1: OVER 2 HR: ADMINISTERED AT INTERVALS OF 2 WEEKS
  2. FLUOROURACIL. [Suspect]
     Active Substance: FLUOROURACIL
     Indication: METASTASES TO LIVER
     Dosage: ADMINISTERED CONTINUOUSLY OVER 46 HR
  3. FLUOROURACIL. [Suspect]
     Active Substance: FLUOROURACIL
     Indication: RECTAL ADENOCARCINOMA
     Dosage: 5-FU 400 MG/M2 ADMINISTERED AS A BOLUS, AND 2400 MG/M2 ADMINISTERED CONTINUOUSLY OVER 46 HR
  4. FLUOROURACIL. [Suspect]
     Active Substance: FLUOROURACIL
     Indication: METASTASES TO LIVER
     Dosage: BOLUS
  5. OXALIPLATIN. [Suspect]
     Active Substance: OXALIPLATIN
     Indication: RECTAL ADENOCARCINOMA
     Dosage: ON DAY 1: OVER 2 HR: ADMINISTERED AT INTERVALS OF 2 WEEKS
  6. FOLINIC ACID [Suspect]
     Active Substance: LEUCOVORIN
     Indication: RECTAL ADENOCARCINOMA
     Dosage: ON DAY 1: OVER 2 HR: ADMINISTERED AT INTERVALS OF 2 WEEKS
  7. CETUXIMAB. [Suspect]
     Active Substance: CETUXIMAB
     Indication: RECTAL ADENOCARCINOMA
     Dosage: 400 MG/M2 OVER 2 HR AND THEN AT 250 MG/M2 OVER 1 HR AT INTERVALS OF 1 WEEK
  8. CETUXIMAB. [Suspect]
     Active Substance: CETUXIMAB
     Indication: RECTAL ADENOCARCINOMA
     Dosage: OVER 1 HR:AT INTERVAL OF 1 WEEK
  9. FLUOROURACIL. [Suspect]
     Active Substance: FLUOROURACIL
     Indication: RECTAL ADENOCARCINOMA
     Dosage: ADMINISTERED CONTINUOUSLY OVER 46 HR
  10. CETUXIMAB. [Suspect]
     Active Substance: CETUXIMAB
     Indication: METASTASES TO LIVER
     Dosage: OVER 2 HR:AT INTERVAL OF 1 WEEK
  11. CETUXIMAB. [Suspect]
     Active Substance: CETUXIMAB
     Indication: METASTASES TO LIVER
     Dosage: OVER 1 HR:AT INTERVAL OF 1 WEEK

REACTIONS (5)
  - Stomatitis [Unknown]
  - Dermatitis acneiform [Unknown]
  - Paronychia [Unknown]
  - Thrombocytopenia [Unknown]
  - Neuropathy peripheral [Unknown]
